FAERS Safety Report 12340919 (Version 2)
Quarter: 2016Q3

REPORT INFORMATION
  Report Type: Spontaneous
  Country: US (occurrence: US)
  Receive Date: 20160506
  Receipt Date: 20160708
  Transmission Date: 20161109
  Serious: Yes (Other)
  Sender: FDA-Public Use
  Company Number: US-PFIZER INC-2016243930

PATIENT
  Age: 46 Year
  Sex: Male

DRUGS (7)
  1. DEPO-TESTOSTERONE [Suspect]
     Active Substance: TESTOSTERONE CYPIONATE
     Indication: HORMONE REPLACEMENT THERAPY
     Dosage: UNK
     Dates: start: 2008, end: 2013
  2. PROZAC [Concomitant]
     Active Substance: FLUOXETINE HYDROCHLORIDE
     Indication: DEPRESSION
     Dosage: UNK
     Dates: start: 2008
  3. DEPO-TESTOSTERONE [Suspect]
     Active Substance: TESTOSTERONE CYPIONATE
     Dosage: UNK, TWICE MONTHLY
     Dates: start: 201403, end: 201505
  4. FLUOXETINE [Concomitant]
     Active Substance: FLUOXETINE HYDROCHLORIDE
     Indication: DEPRESSION
     Dosage: UNK
     Dates: start: 2008
  5. NOVOLOG [Concomitant]
     Active Substance: INSULIN ASPART
     Indication: DIABETES MELLITUS
     Dosage: UNK
     Dates: start: 2009
  6. METFORMIN [Concomitant]
     Active Substance: METFORMIN HYDROCHLORIDE
     Indication: DIABETES MELLITUS
     Dosage: UNK
     Dates: start: 2009
  7. DEPO-TESTOSTERONE [Suspect]
     Active Substance: TESTOSTERONE CYPIONATE
     Dosage: UNK, TWICE MONTHLY
     Dates: start: 200902, end: 201110

REACTIONS (11)
  - Hypoaesthesia [Unknown]
  - Personality change [Unknown]
  - Libido decreased [Unknown]
  - Pain [Unknown]
  - Cerebrovascular accident [Unknown]
  - Disturbance in attention [Unknown]
  - Ageusia [Unknown]
  - Visual field defect [Unknown]
  - Depression [Unknown]
  - Neuralgia [Unknown]
  - Anger [Unknown]

NARRATIVE: CASE EVENT DATE: 2010
